FAERS Safety Report 12172694 (Version 1)
Quarter: 2016Q1

REPORT INFORMATION
  Report Type: Spontaneous
  Country: NP (occurrence: NP)
  Receive Date: 20160311
  Receipt Date: 20160311
  Transmission Date: 20160526
  Serious: Yes (Hospitalization, Other)
  Sender: FDA-Public Use
  Company Number: NP-PERRIGO-16NP013721

PATIENT
  Age: 22 Year
  Sex: Male

DRUGS (1)
  1. IBUPROFEN. [Suspect]
     Active Substance: IBUPROFEN
     Indication: EYE PAIN
     Dosage: 400 MG, EVERY 8 HOURS, FOR THREE DOSES TOTAL
     Route: 048

REACTIONS (4)
  - Stevens-Johnson syndrome [Recovered/Resolved]
  - Pseudomonas infection [Recovered/Resolved]
  - Toxic epidermal necrolysis [Recovered/Resolved]
  - Staphylococcal infection [Recovered/Resolved]
